FAERS Safety Report 23717328 (Version 1)
Quarter: 2024Q2

REPORT INFORMATION
  Report Type: Spontaneous
  Country: EE (occurrence: EE)
  Receive Date: 20240408
  Receipt Date: 20240408
  Transmission Date: 20240716
  Serious: Yes (Life-Threatening)
  Sender: FDA-Public Use
  Company Number: None

PATIENT
  Age: 64 Year
  Sex: Male
  Weight: 84 kg

DRUGS (2)
  1. OXALIPLATIN [Suspect]
     Active Substance: OXALIPLATIN
     Indication: Intestinal adenocarcinoma
     Dosage: STRENGTH: 5?5 MG/ML, CONCENTRATE FOR SOLUTION FOR INFUSION
     Dates: start: 20240202, end: 20240202
  2. KETOPROFEN [Concomitant]
     Active Substance: KETOPROFEN
     Dates: start: 20240112

REACTIONS (2)
  - Hypertension [Recovered/Resolved]
  - Oropharyngeal discomfort [Recovered/Resolved]

NARRATIVE: CASE EVENT DATE: 20240202
